FAERS Safety Report 13834341 (Version 1)
Quarter: 2017Q3

REPORT INFORMATION
  Report Type: Spontaneous
  Country: US (occurrence: US)
  Receive Date: 20170804
  Receipt Date: 20170804
  Transmission Date: 20171127
  Serious: Yes (Other)
  Sender: FDA-Public Use
  Company Number: None

PATIENT
  Age: 83 Year
  Sex: Male
  Weight: 89 kg

DRUGS (2)
  1. SIMVASTATIN. [Concomitant]
     Active Substance: SIMVASTATIN
  2. IMBRUVICA [Suspect]
     Active Substance: IBRUTINIB

REACTIONS (2)
  - Drug-induced liver injury [None]
  - Transaminases increased [None]

NARRATIVE: CASE EVENT DATE: 20160608
